FAERS Safety Report 23338118 (Version 1)
Quarter: 2023Q4

REPORT INFORMATION
  Report Type: Spontaneous
  Country: AU (occurrence: AU)
  Receive Date: 20231226
  Receipt Date: 20231226
  Transmission Date: 20240109
  Serious: Yes (Hospitalization, Other)
  Sender: FDA-Public Use
  Company Number: None

PATIENT
  Age: 26 Year
  Sex: Female

DRUGS (2)
  1. LEVETIRACETAM [Suspect]
     Active Substance: LEVETIRACETAM
     Indication: Product used for unknown indication
     Dosage: 500 MILLIGRAM, 2X/DAY (BID)
  2. DEXAMETHASONE [Suspect]
     Active Substance: DEXAMETHASONE
     Indication: Product used for unknown indication
     Dosage: 4 MILLIGRAM, 2X/DAY (BID)

REACTIONS (7)
  - Headache [Unknown]
  - Neutrophilia [Unknown]
  - Papule [Unknown]
  - Pyrexia [Unknown]
  - Rash [Unknown]
  - Rash pruritic [Unknown]
  - Acute generalised exanthematous pustulosis [Recovered/Resolved]
